FAERS Safety Report 9122111 (Version 1)
Quarter: 2013Q1

REPORT INFORMATION
  Report Type: Spontaneous
  Country: US (occurrence: None)
  Receive Date: 20130125
  Receipt Date: 20130125
  Transmission Date: 20140127
  Serious: No
  Sender: FDA-Public Use
  Company Number: 2012US-004441

PATIENT
  Age: 59 Year
  Sex: Female
  Weight: 56 kg

DRUGS (4)
  1. OMONTYS (PEGINESATIDE) SOLUTION FOR INJECTION [Suspect]
     Indication: NEPHROGENIC ANAEMIA
     Dates: start: 20121024, end: 20121024
  2. HEPARIN (HEPARIN) [Concomitant]
  3. VENOFER [Concomitant]
  4. HECTOROL (DOXERCALCIFEROL) [Concomitant]

REACTIONS (7)
  - Pruritus [None]
  - Skin disorder [None]
  - Dizziness [None]
  - Feeling hot [None]
  - Vision blurred [None]
  - Fatigue [None]
  - Dyspnoea [None]
